FAERS Safety Report 8373055-X (Version None)
Quarter: 2012Q2

REPORT INFORMATION
  Report Type: 
  Country: None (occurrence: None)
  Receive Date: 20120521
  Receipt Date: 20120515
  Transmission Date: 20120825
  Serious: Yes (Other)
  Sender: FDA-Public Use
  Company Number: CA-ABBOTT-12P-028-0929619-00

PATIENT
  Sex: Male
  Weight: 106 kg

DRUGS (1)
  1. HUMIRA [Suspect]
     Indication: CROHN'S DISEASE
     Dosage: 40 MG, 1 IN 2 WEEKS
     Route: 058
     Dates: start: 20111110

REACTIONS (8)
  - VOMITING [None]
  - DEHYDRATION [None]
  - CONSTIPATION [None]
  - FLANK PAIN [None]
  - PAIN [None]
  - RENAL IMPAIRMENT [None]
  - NEPHROLITHIASIS [None]
  - HYDRONEPHROSIS [None]
